FAERS Safety Report 15035393 (Version 1)
Quarter: 2018Q2

REPORT INFORMATION
  Report Type: Spontaneous
  Country: US (occurrence: US)
  Receive Date: 20180620
  Receipt Date: 20180620
  Transmission Date: 20180711
  Serious: No
  Sender: FDA-Public Use
  Company Number: US-AUROBINDO-AUR-APU-2017-36701

PATIENT
  Age: 9 Year
  Sex: Female

DRUGS (1)
  1. CLINDAMYCIN ORAL SOLUTION [Suspect]
     Active Substance: CLINDAMYCIN
     Indication: PRODUCT USED FOR UNKNOWN INDICATION
     Dosage: THRICE A DAY
     Route: 065
     Dates: start: 20170623

REACTIONS (2)
  - Headache [Unknown]
  - Liquid product physical issue [Unknown]

NARRATIVE: CASE EVENT DATE: 20170623
